FAERS Safety Report 16118696 (Version 1)
Quarter: 2019Q1

REPORT INFORMATION
  Report Type: Spontaneous
  Country: US (occurrence: US)
  Receive Date: 20190326
  Receipt Date: 20190326
  Transmission Date: 20190418
  Serious: No
  Sender: FDA-Public Use
  Company Number: US-CHIESI USA, INC.-US-2018CHI000268

PATIENT
  Sex: Male

DRUGS (2)
  1. CARDENE [Suspect]
     Active Substance: NICARDIPINE HYDROCHLORIDE
     Indication: PRODUCT USED FOR UNKNOWN INDICATION
     Dosage: 0.4 MG/ML, ONE HOUR
     Route: 042
     Dates: start: 20180911
  2. CARDENE [Suspect]
     Active Substance: NICARDIPINE HYDROCHLORIDE
     Dosage: 40MG IN 200ML, UNK
     Route: 042

REACTIONS (2)
  - Incorrect drug administration rate [Unknown]
  - Product label confusion [Unknown]

NARRATIVE: CASE EVENT DATE: 20180911
